FAERS Safety Report 5179346-8 (Version None)
Quarter: 2006Q4

REPORT INFORMATION
  Report Type: 
  Country: None (occurrence: None)
  Receive Date: 20061219
  Receipt Date: 20061215
  Transmission Date: 20070319
  Serious: Yes (Other)
  Sender: FDA-Public Use
  Company Number: ZA-GLAXOSMITHKLINE-B0450971A

PATIENT
  Age: 16 Year
  Sex: Female

DRUGS (2)
  1. AROPAX [Suspect]
     Indication: PROPHYLAXIS
  2. ACETAMINOPHEN [Suspect]

REACTIONS (1)
  - SUICIDE ATTEMPT [None]
